FAERS Safety Report 4299069-7 (Version None)
Quarter: 2004Q1

REPORT INFORMATION
  Report Type: 
  Country: None (occurrence: None)
  Receive Date: 20040217
  Receipt Date: 20040130
  Transmission Date: 20041129
  Serious: Yes (Other)
  Sender: FDA-Public Use
  Company Number: 2003120523

PATIENT
  Age: 58 Year
  Sex: Male
  Weight: 86.1834 kg

DRUGS (7)
  1. LIPITOR [Suspect]
     Indication: HYPERLIPIDAEMIA
     Dosage: 10 MG DAILY ORAL  5 YEARS AGO
     Route: 048
  2. COD-LIVER OIL (COD-LIVER OIL) [Suspect]
     Indication: ILL-DEFINED DISORDER
     Dates: end: 20031101
  3. LINSEED OIL (LINSEED OIL) [Suspect]
     Indication: ILL-DEFINED DISORDER
     Dates: end: 20031101
  4. MULTIVITAMIN [Suspect]
     Indication: ILL-DEFINED DISORDER
     Dates: end: 20031101
  5. NICOTINIC ACID [Suspect]
     Indication: LIPIDS INCREASED
     Dosage: ORAL
     Route: 048
     Dates: start: 20020401, end: 20031101
  6. INDAPAMIDE [Concomitant]
  7. ESCITALOPRAM [Concomitant]

REACTIONS (8)
  - BLOOD CHOLESTEROL INCREASED [None]
  - CONDITION AGGRAVATED [None]
  - FLATULENCE [None]
  - HIGH DENSITY LIPOPROTEIN DECREASED [None]
  - LACTOSE INTOLERANCE [None]
  - LIPIDS INCREASED [None]
  - LOW DENSITY LIPOPROTEIN INCREASED [None]
  - PROSTATE CANCER [None]
